FAERS Safety Report 11139538 (Version 1)
Quarter: 2015Q2

REPORT INFORMATION
  Report Type: Spontaneous
  Country: US (occurrence: US)
  Receive Date: 20150527
  Receipt Date: 20150527
  Transmission Date: 20150821
  Serious: No
  Sender: FDA-Public Use
  Company Number: US-BAYER-2015-277115

PATIENT
  Age: 75 Year
  Sex: Female
  Weight: 74.83 kg

DRUGS (3)
  1. VERAPAMIL [Concomitant]
     Active Substance: VERAPAMIL HYDROCHLORIDE
     Dosage: UNK
  2. NOVOLIN GE [INSULIN HUMAN] [Concomitant]
     Dosage: UNK
  3. MIRALAX [Suspect]
     Active Substance: POLYETHYLENE GLYCOL 3350
     Indication: CONSTIPATION
     Dosage: 1 DOSE QD
     Route: 048
     Dates: start: 2013

REACTIONS (2)
  - Medication error [Unknown]
  - Incorrect drug administration duration [None]

NARRATIVE: CASE EVENT DATE: 2013
